FAERS Safety Report 14690525 (Version 6)
Quarter: 2018Q4

REPORT INFORMATION
  Report Type: Spontaneous
  Country: CA (occurrence: CA)
  Receive Date: 20180328
  Receipt Date: 20181221
  Transmission Date: 20190204
  Serious: Yes (Hospitalization, Other)
  Sender: FDA-Public Use
  Company Number: CA-PFIZER INC-2018036459

PATIENT
  Age: 46 Year
  Sex: Female

DRUGS (11)
  1. XELJANZ [Suspect]
     Active Substance: TOFACITINIB CITRATE
     Indication: RHEUMATOID ARTHRITIS
     Dosage: 5 MG, TWICE DAILY (EVERY MONDAY, WEDNESDAY, FRIDAY MORNINGS, ON VARIABLE DAYS FOR 2 WEEKS)
     Route: 048
     Dates: start: 20180131
  2. XELJANZ [Suspect]
     Active Substance: TOFACITINIB CITRATE
     Dosage: 5 MG, ONCE DAILY
     Route: 048
     Dates: start: 2018, end: 201809
  3. NABILONE [Concomitant]
     Active Substance: NABILONE
     Dosage: UNK
  4. XELJANZ [Suspect]
     Active Substance: TOFACITINIB CITRATE
     Dosage: UNKNOWN DOSE, ONCE DAILY
     Route: 048
     Dates: start: 2018, end: 201806
  5. XELJANZ [Suspect]
     Active Substance: TOFACITINIB CITRATE
     Dosage: 5 MG, TWICE DAILY (2 TABLETS PER DAY)
     Route: 048
     Dates: start: 201809, end: 2018
  6. XELJANZ [Suspect]
     Active Substance: TOFACITINIB CITRATE
     Dosage: 5 MG, ONCE DAILY (ON VARIABLE DAYS)
     Route: 048
     Dates: start: 20180212, end: 20180215
  7. XELJANZ [Suspect]
     Active Substance: TOFACITINIB CITRATE
     Dosage: 5 MG, ONCE DAILY
     Route: 048
     Dates: start: 2018, end: 20181001
  8. BACLOFEN. [Concomitant]
     Active Substance: BACLOFEN
     Dosage: 15 MG (5MG AM AND 10MG PM AT NIGHT), DAILY
  9. IMODIUM [Concomitant]
     Active Substance: LOPERAMIDE HYDROCHLORIDE
     Indication: DIARRHOEA
     Dosage: UNK
  10. XELJANZ [Suspect]
     Active Substance: TOFACITINIB CITRATE
     Dosage: 5 MG, ONCE DAILY
     Route: 048
     Dates: start: 20180221, end: 20180322
  11. PREDNISONE. [Concomitant]
     Active Substance: PREDNISONE
     Dosage: 10 MG, DAILY

REACTIONS (20)
  - Uterine haemorrhage [Unknown]
  - Drug ineffective [Not Recovered/Not Resolved]
  - Condition aggravated [Unknown]
  - Abdominal discomfort [Not Recovered/Not Resolved]
  - Alopecia [Not Recovered/Not Resolved]
  - Disease recurrence [Not Recovered/Not Resolved]
  - Weight decreased [Not Recovered/Not Resolved]
  - Chest pain [Unknown]
  - Headache [Unknown]
  - Intentional product misuse [Unknown]
  - Nasopharyngitis [Unknown]
  - Off label use [Unknown]
  - Diarrhoea [Not Recovered/Not Resolved]
  - Vomiting [Unknown]
  - Insomnia [Not Recovered/Not Resolved]
  - Dysgeusia [Not Recovered/Not Resolved]
  - Nausea [Unknown]
  - Bradycardia [Not Recovered/Not Resolved]
  - Heart injury [Unknown]
  - Precancerous cells present [Unknown]

NARRATIVE: CASE EVENT DATE: 2018
